FAERS Safety Report 18315180 (Version 1)
Quarter: 2020Q3

REPORT INFORMATION
  Report Type: Other
  Country: US (occurrence: US)
  Receive Date: 20200925
  Receipt Date: 20200925
  Transmission Date: 20201103
  Serious: No
  Sender: FDA-Public Use
  Company Number: US-VERASTEM-2020-00151

PATIENT

DRUGS (1)
  1. COPIKTRA [Suspect]
     Active Substance: DUVELISIB
     Indication: CUTANEOUS LYMPHOMA
     Dosage: 25 MG, BID
     Route: 048
     Dates: start: 20200603, end: 20200825

REACTIONS (5)
  - Product use in unapproved indication [Not Recovered/Not Resolved]
  - Contusion [Not Recovered/Not Resolved]
  - Oral pain [Not Recovered/Not Resolved]
  - Rash pruritic [Not Recovered/Not Resolved]
  - Arthralgia [Not Recovered/Not Resolved]

NARRATIVE: CASE EVENT DATE: 20200603
